FAERS Safety Report 11512675 (Version 1)
Quarter: 2015Q3

REPORT INFORMATION
  Report Type: Spontaneous
  Country: FR (occurrence: FR)
  Receive Date: 20150916
  Receipt Date: 20150916
  Transmission Date: 20151125
  Serious: Yes (Hospitalization)
  Sender: FDA-Public Use
  Company Number: FR-GLAXOSMITHKLINE-B0657240A

PATIENT
  Age: 97 Year
  Sex: Male

DRUGS (6)
  1. ARIXTRA [Suspect]
     Active Substance: FONDAPARINUX SODIUM
     Indication: PRODUCT USED FOR UNKNOWN INDICATION
     Dosage: REDUCED TO 1 INJECTION EVERY OTHER DAY
     Route: 058
     Dates: start: 2008
  2. CACIT [Concomitant]
     Active Substance: CALCIUM\VITAMIN D
     Route: 048
  3. MECIR [Concomitant]
     Active Substance: TAMSULOSIN HYDROCHLORIDE
     Indication: BENIGN PROSTATIC HYPERPLASIA
     Dosage: 0.4 MG, UNK
     Route: 048
  4. LASILIX [Concomitant]
     Active Substance: FUROSEMIDE
     Indication: RENAL FAILURE
     Route: 048
  5. ZOPICLONE [Concomitant]
     Active Substance: ZOPICLONE
     Route: 065
  6. CORTANCYL [Concomitant]
     Active Substance: PREDNISONE
     Indication: PAIN
     Route: 048

REACTIONS (5)
  - Normochromic normocytic anaemia [Recovered/Resolved]
  - Contraindication to medical treatment [Unknown]
  - Wound haemorrhage [Unknown]
  - Haematoma [Recovered/Resolved]
  - Oedema peripheral [Recovered/Resolved]

NARRATIVE: CASE EVENT DATE: 20080623
